FAERS Safety Report 9117934 (Version 2)
Quarter: 2013Q2

REPORT INFORMATION
  Report Type: Spontaneous
  Country: JP (occurrence: JP)
  Receive Date: 20130225
  Receipt Date: 20130401
  Transmission Date: 20140414
  Serious: Yes (Life-Threatening)
  Sender: FDA-Public Use
  Company Number: JP-ASTRAZENECA-2013SE11875

PATIENT
  Age: 78 Year
  Sex: Male
  Weight: 79 kg

DRUGS (5)
  1. PROPOFOL [Suspect]
     Indication: INDUCTION OF ANAESTHESIA
     Route: 042
  2. FENTANYL [Concomitant]
     Indication: INDUCTION OF ANAESTHESIA
     Dosage: DOSE UNKNOWN
     Route: 042
  3. REMIFENTANIL HYDROCHLORIDE [Concomitant]
     Indication: MAINTENANCE OF ANAESTHESIA
     Dosage: DOSE UNKNOWN
     Route: 065
  4. ROCURONIUM BROMIDE [Concomitant]
     Indication: INDUCTION AND MAINTENANCE OF ANAESTHESIA
     Dosage: DOSE UNKNOWN
     Route: 042
  5. SEVOFLURANE [Concomitant]
     Indication: MAINTENANCE OF ANAESTHESIA
     Dosage: DOSE UNKNOWN
     Route: 055

REACTIONS (2)
  - Respiratory arrest [Unknown]
  - Bradycardia [Unknown]
